FAERS Safety Report 6970272-8 (Version None)
Quarter: 2010Q3

REPORT INFORMATION
  Report Type: 
  Country: None (occurrence: None)
  Receive Date: 20100908
  Receipt Date: 20100902
  Transmission Date: 20110219
  Serious: Yes (Death)
  Sender: FDA-Public Use
  Company Number: PHHY2010JP58179

PATIENT
  Sex: Female
  Weight: 42 kg

DRUGS (4)
  1. DIOVAN [Suspect]
     Indication: HYPERTENSION
     Dosage: 80 MG, QD
     Route: 048
     Dates: start: 20080620, end: 20090620
  2. AZELASTINE HCL [Concomitant]
     Indication: HYPERTENSION
     Dosage: 16 MG, UNK
     Route: 048
     Dates: start: 20080613
  3. VOGLIBOSE [Concomitant]
     Dosage: 0.6 MG, UNK
     Route: 048
     Dates: start: 20080613, end: 20090527
  4. VESICARE [Concomitant]
     Dosage: 5 MG, UNK
     Route: 048
     Dates: start: 20081206

REACTIONS (1)
  - DEATH [None]
